FAERS Safety Report 4781781-4 (Version None)
Quarter: 2005Q3

REPORT INFORMATION
  Report Type: 
  Country: None (occurrence: None)
  Receive Date: 20050927
  Receipt Date: 20050914
  Transmission Date: 20060218
  Serious: Yes (Other)
  Sender: FDA-Public Use
  Company Number: USA0509108061

PATIENT
  Age: 32 Year
  Sex: Female
  Weight: 58 kg

DRUGS (5)
  1. HUMALOG [Suspect]
     Indication: DIABETES MELLITUS
     Dates: start: 19960101
  2. HUMULIN R [Suspect]
     Indication: DIABETES MELLITUS
     Dates: start: 19930101, end: 19960101
  3. HUMULIN N [Suspect]
     Indication: DIABETES MELLITUS
     Dates: start: 19930101, end: 19960101
  4. LENTE ILETIN (BEEF-PORK) INSULIN ZINC [Suspect]
     Indication: DIABETES MELLITUS
     Dates: start: 19730101, end: 19930101
  5. LANTUS [Concomitant]

REACTIONS (5)
  - ANTI-INSULIN ANTIBODY POSITIVE [None]
  - BLOOD GLUCOSE FLUCTUATION [None]
  - GRAND MAL CONVULSION [None]
  - IMPAIRED GASTRIC EMPTYING [None]
  - LOSS OF CONSCIOUSNESS [None]
